FAERS Safety Report 22953476 (Version 5)
Quarter: 2023Q4

REPORT INFORMATION
  Report Type: Spontaneous
  Country: US (occurrence: US)
  Receive Date: 20230918
  Receipt Date: 20231226
  Transmission Date: 20240109
  Serious: Yes (Hospitalization, Other)
  Sender: FDA-Public Use
  Company Number: US-ASTELLAS-2023US027538

PATIENT
  Age: 76 Year
  Sex: Male

DRUGS (10)
  1. MYRBETRIQ [Suspect]
     Active Substance: MIRABEGRON
     Indication: Pollakiuria
     Route: 048
     Dates: start: 2023, end: 2023
  2. MYRBETRIQ [Suspect]
     Active Substance: MIRABEGRON
     Indication: Pollakiuria
     Route: 048
     Dates: start: 2023, end: 202308
  3. MYRBETRIQ [Suspect]
     Active Substance: MIRABEGRON
     Route: 048
     Dates: start: 202308
  4. SUCRALFATE [Suspect]
     Active Substance: SUCRALFATE
     Indication: Gastrointestinal haemorrhage
     Route: 065
     Dates: start: 202308
  5. PANTOPRAZOLE [Suspect]
     Active Substance: PANTOPRAZOLE
     Indication: Gastrointestinal haemorrhage
     Route: 065
     Dates: start: 202308
  6. NAPROXEN [Concomitant]
     Active Substance: NAPROXEN
     Indication: Product used for unknown indication
     Dosage: 660 MG, OTHER (FIRST THING IN AM PRIOR TO MEAL)
     Route: 065
     Dates: end: 20230820
  7. CELEBREX [Concomitant]
     Active Substance: CELECOXIB
     Indication: Product used for unknown indication
     Dosage: 200 MG, OTHER (FIRST THING IN AM PRIOR TO MEAL)
     Route: 065
     Dates: end: 20230820
  8. ASPIRIN [Concomitant]
     Active Substance: ASPIRIN
     Indication: Product used for unknown indication
     Dosage: UNK UNK, OTHER (FIRST THING IN AM PRIOR TO MEAL)
     Route: 065
     Dates: end: 20230820
  9. CLOPIDOGREL [Concomitant]
     Active Substance: CLOPIDOGREL BISULFATE
     Indication: Product used for unknown indication
     Dosage: 75 MG, OTHER (FIRST THING IN AM PRIOR TO MEAL)
     Route: 065
     Dates: end: 20230820
  10. FERROUS SULFATE [Concomitant]
     Active Substance: FERROUS SULFATE
     Indication: Product used for unknown indication
     Dosage: UNK UNK, OTHER (FIRST THING IN AM PRIOR TO MEAL)
     Route: 065
     Dates: end: 20230820

REACTIONS (3)
  - Gastrointestinal haemorrhage [Recovered/Resolved]
  - Urine output increased [Recovering/Resolving]
  - Drug ineffective [Unknown]

NARRATIVE: CASE EVENT DATE: 20230819
